FAERS Safety Report 6154133-2 (Version None)
Quarter: 2009Q2

REPORT INFORMATION
  Report Type: 
  Country: None (occurrence: None)
  Receive Date: 20090414
  Receipt Date: 20090409
  Transmission Date: 20091009
  Serious: Yes (Other)
  Sender: FDA-Public Use
  Company Number: US-BAYER-200912660NA

PATIENT
  Sex: Female

DRUGS (1)
  1. MIRENA [Suspect]
     Indication: CONTRACEPTION
     Dosage: 20 MCG/DAY CONTINUOUS
     Route: 015
     Dates: start: 20070901, end: 20090107

REACTIONS (2)
  - PELVIC PAIN [None]
  - UTERINE RUPTURE [None]
